FAERS Safety Report 6555244-X (Version None)
Quarter: 2010Q1

REPORT INFORMATION
  Report Type: 
  Country: None (occurrence: None)
  Receive Date: 20100128
  Receipt Date: 20081219
  Transmission Date: 20100710
  Serious: No
  Sender: FDA-Public Use
  Company Number: A0761234A

PATIENT
  Age: 35 Year
  Sex: Male
  Weight: 81.6 kg

DRUGS (4)
  1. WELLBUTRIN [Suspect]
     Route: 065
  2. LYRICA [Suspect]
     Indication: ILL-DEFINED DISORDER
     Dosage: 150MG PER DAY
     Dates: start: 20060101
  3. OXYCODONE [Concomitant]
  4. UNSPECIFIED MEDICATIONS [Concomitant]

REACTIONS (7)
  - DIZZINESS [None]
  - DRUG INTERACTION [None]
  - MEMORY IMPAIRMENT [None]
  - MENTAL DISORDER [None]
  - OEDEMA PERIPHERAL [None]
  - TREMOR [None]
  - VISUAL IMPAIRMENT [None]
